FAERS Safety Report 8224271-9 (Version None)
Quarter: 2012Q1

REPORT INFORMATION
  Report Type: 
  Country: None (occurrence: None)
  Receive Date: 20120321
  Receipt Date: 20120314
  Transmission Date: 20120608
  Serious: Yes (Hospitalization, Other)
  Sender: FDA-Public Use
  Company Number: US-ASTELLAS-2012US002872

PATIENT
  Sex: Male

DRUGS (2)
  1. ERLOTINIB HYDROCHLORIDE [Suspect]
     Indication: PANCREATIC CARCINOMA
     Dosage: UNK
     Route: 048
     Dates: start: 20110923
  2. CAPECITABINE [Suspect]
     Indication: PANCREATIC CARCINOMA
     Dosage: UNK
     Route: 048
     Dates: start: 20110923

REACTIONS (5)
  - METABOLIC ACIDOSIS [None]
  - OESOPHAGEAL CANDIDIASIS [None]
  - HAEMORRHAGE [None]
  - DEHYDRATION [None]
  - DIARRHOEA [None]
